FAERS Safety Report 15996740 (Version 1)
Quarter: 2019Q1

REPORT INFORMATION
  Report Type: Spontaneous
  Country: US (occurrence: US)
  Receive Date: 20190222
  Receipt Date: 20190222
  Transmission Date: 20190418
  Serious: Yes (Life-Threatening, Hospitalization, Disabling)
  Sender: FDA-Public Use
  Company Number: None

PATIENT
  Age: 78 Year
  Sex: Male
  Weight: 90 kg

DRUGS (9)
  1. ELIQUIS [Suspect]
     Active Substance: APIXABAN
     Indication: ATRIAL FIBRILLATION
     Dosage: ?          QUANTITY:60 TABLET(S);?
     Route: 048
  2. LIPITOR [Concomitant]
     Active Substance: ATORVASTATIN CALCIUM
  3. TIKOSYN [Concomitant]
     Active Substance: DOFETILIDE
  4. LEVEMIR [Concomitant]
     Active Substance: INSULIN DETEMIR
  5. MULTIVITAMIN [Concomitant]
     Active Substance: VITAMINS
  6. NORVASC [Concomitant]
     Active Substance: AMLODIPINE BESYLATE
  7. ASPIRIN. [Concomitant]
     Active Substance: ASPIRIN
  8. AMARYL [Concomitant]
     Active Substance: GLIMEPIRIDE
  9. LISINOPRIL. [Concomitant]
     Active Substance: LISINOPRIL

REACTIONS (3)
  - Cerebrovascular accident [None]
  - Asthenia [None]
  - Fall [None]

NARRATIVE: CASE EVENT DATE: 20190120
